FAERS Safety Report 8869805 (Version 1)
Quarter: 2012Q4

REPORT INFORMATION
  Report Type: Spontaneous
  Country: US (occurrence: None)
  Receive Date: 20121024
  Receipt Date: 20121024
  Transmission Date: 20130627
  Serious: Yes (Hospitalization)
  Sender: FDA-Public Use
  Company Number: NSR_00694_2012

PATIENT
  Sex: Male

DRUGS (2)
  1. CLONIDINE [Suspect]
     Indication: DERMATITIS DIAPER
     Route: 061
  2. NORKETAMINE [Suspect]
     Indication: PRODUCT USED FOR UNKNOWN INDICATION

REACTIONS (10)
  - Dyspnoea [None]
  - Unresponsive to stimuli [None]
  - Miosis [None]
  - Hyporeflexia [None]
  - Sinus bradycardia [None]
  - Blood pressure decreased [None]
  - Respiratory depression [None]
  - Mental impairment [None]
  - Toxicity to various agents [None]
  - Off label use [None]
